FAERS Safety Report 13680225 (Version 2)
Quarter: 2017Q3

REPORT INFORMATION
  Report Type: Report from Study
  Country: US (occurrence: US)
  Receive Date: 20170622
  Receipt Date: 20170905
  Transmission Date: 20171127
  Serious: No
  Sender: FDA-Public Use
  Company Number: US-009507513-1706USA006135

PATIENT
  Age: 55 Year
  Sex: Female

DRUGS (6)
  1. EMEND [Suspect]
     Active Substance: APREPITANT
     Dosage: THIRD AND FOURTH INFUSIONS
     Route: 042
     Dates: start: 201612
  2. CYCLOPHOSPHAMIDE. [Concomitant]
     Active Substance: CYCLOPHOSPHAMIDE
  3. EMEND [Suspect]
     Active Substance: APREPITANT
     Indication: PROPHYLAXIS OF NAUSEA AND VOMITING
     Dosage: UNK
     Route: 042
     Dates: start: 20161104
  4. DOXORUBICIN [Concomitant]
     Active Substance: DOXORUBICIN
  5. NADOLOL. [Concomitant]
     Active Substance: NADOLOL
  6. EMEND [Suspect]
     Active Substance: APREPITANT
     Dosage: UNK
     Route: 042
     Dates: start: 2016, end: 2016

REACTIONS (6)
  - Infusion site erythema [Recovered/Resolved]
  - Peripheral swelling [Not Recovered/Not Resolved]
  - Infusion site pain [Recovered/Resolved]
  - Pain in extremity [Not Recovered/Not Resolved]
  - Burning sensation [Recovered/Resolved]
  - Infusion site discomfort [Not Recovered/Not Resolved]

NARRATIVE: CASE EVENT DATE: 201612
